FAERS Safety Report 9083955 (Version 1)
Quarter: 2013Q1

REPORT INFORMATION
  Report Type: Report from Study
  Country: US (occurrence: US)
  Receive Date: 20130130
  Receipt Date: 20130130
  Transmission Date: 20140127
  Serious: No
  Sender: FDA-Public Use
  Company Number: US-ABBOTT-12P-163-0981200-00

PATIENT
  Age: 79 Year
  Sex: Male

DRUGS (12)
  1. HUMIRA [Suspect]
     Indication: PSORIASIS
     Dosage: LOADING DOSE
     Route: 058
     Dates: start: 20120831, end: 20120831
  2. HUMIRA [Suspect]
     Route: 058
     Dates: start: 20120914, end: 20120914
  3. HUMIRA [Suspect]
     Route: 058
  4. PREDNISONE [Concomitant]
     Indication: PRODUCT USED FOR UNKNOWN INDICATION
  5. FUROSEMIDE [Concomitant]
     Indication: PRODUCT USED FOR UNKNOWN INDICATION
  6. KLOR-CON [Concomitant]
     Indication: PRODUCT USED FOR UNKNOWN INDICATION
  7. PANTOPRAZOLE [Concomitant]
     Indication: PRODUCT USED FOR UNKNOWN INDICATION
  8. SIMVASTATIN [Concomitant]
     Indication: PRODUCT USED FOR UNKNOWN INDICATION
  9. SERTRALINE [Concomitant]
     Indication: ANXIETY
  10. CARVEDILOL [Concomitant]
     Indication: PRODUCT USED FOR UNKNOWN INDICATION
  11. CAPTOPRIL [Concomitant]
     Indication: PRODUCT USED FOR UNKNOWN INDICATION
  12. BABY ASPIRIN [Concomitant]
     Indication: PRODUCT USED FOR UNKNOWN INDICATION

REACTIONS (7)
  - Muscular weakness [Not Recovered/Not Resolved]
  - Balance disorder [Not Recovered/Not Resolved]
  - Back pain [Not Recovered/Not Resolved]
  - Neck pain [Not Recovered/Not Resolved]
  - Musculoskeletal pain [Not Recovered/Not Resolved]
  - Muscle tightness [Not Recovered/Not Resolved]
  - Hypoaesthesia [Not Recovered/Not Resolved]
